FAERS Safety Report 8453720 (Version 3)
Quarter: 2013Q4

REPORT INFORMATION
  Report Type: Spontaneous
  Country: US (occurrence: US)
  Receive Date: 20120312
  Receipt Date: 20131212
  Transmission Date: 20140711
  Serious: Yes (Other)
  Sender: FDA-Public Use
  Company Number: US-ROCHE-1047374

PATIENT
  Age: 25 Year
  Sex: Male
  Weight: 104.42 kg

DRUGS (4)
  1. ACCUTANE [Suspect]
     Indication: ACNE
     Route: 065
     Dates: start: 1999, end: 2000
  2. ACCUTANE [Suspect]
     Route: 065
     Dates: start: 19990714
  3. ACCUTANE [Suspect]
     Route: 065
  4. ACCUTANE [Suspect]
     Route: 065
     Dates: start: 20000128

REACTIONS (8)
  - Colitis ulcerative [Unknown]
  - Inflammatory bowel disease [Unknown]
  - Proctitis [Unknown]
  - Depression [Unknown]
  - Stress [Unknown]
  - Injury [Unknown]
  - Lip dry [Unknown]
  - Dry skin [Unknown]
